FAERS Safety Report 6608402-X (Version None)
Quarter: 2010Q1

REPORT INFORMATION
  Report Type: 
  Country: None (occurrence: None)
  Receive Date: 20100301
  Receipt Date: 20100222
  Transmission Date: 20100710
  Serious: Yes (Other)
  Sender: FDA-Public Use
  Company Number: PL-JNJFOC-20100210181

PATIENT

DRUGS (1)
  1. RISPERIDONE [Suspect]
     Indication: CONDUCT DISORDER
     Route: 048

REACTIONS (2)
  - METABOLIC DISORDER [None]
  - WEIGHT INCREASED [None]
